FAERS Safety Report 8255630-6 (Version None)
Quarter: 2012Q1

REPORT INFORMATION
  Report Type: 
  Country: None (occurrence: None)
  Receive Date: 20120322
  Receipt Date: 20111206
  Transmission Date: 20120608
  Serious: Yes (Hospitalization)
  Sender: FDA-Public Use
  Company Number: UTC-013179

PATIENT
  Age: 72 Year
  Sex: Female
  Weight: 81.4 kg

DRUGS (4)
  1. TYVASO [Suspect]
     Indication: COR PULMONALE CHRONIC
     Dosage: 18 - 54 MICROGRAMS (4 IN 1 D), INHALATION
     Route: 055
     Dates: start: 20091207
  2. REVATIO [Concomitant]
  3. NORVASC [Concomitant]
  4. DIURETICS (DIURETICS) [Concomitant]

REACTIONS (3)
  - CARDIAC FAILURE CONGESTIVE [None]
  - FLUID OVERLOAD [None]
  - OEDEMA [None]
